FAERS Safety Report 20419518 (Version 1)
Quarter: 2022Q1

REPORT INFORMATION
  Report Type: Spontaneous
  Country: US (occurrence: US)
  Receive Date: 20220203
  Receipt Date: 20220203
  Transmission Date: 20220423
  Serious: No
  Sender: FDA-Public Use
  Company Number: ENDG21-06369

PATIENT
  Sex: Female

DRUGS (1)
  1. BUPROPION HYDROCHLORIDE [Suspect]
     Active Substance: BUPROPION HYDROCHLORIDE
     Indication: Product used for unknown indication
     Dosage: UNK UNKNOWN, UNKNOWN
     Route: 065

REACTIONS (8)
  - Sensory overload [Unknown]
  - Ill-defined disorder [Unknown]
  - Abdominal pain upper [Unknown]
  - Insomnia [Unknown]
  - Anxiety [Unknown]
  - Irritability [Unknown]
  - Drug ineffective [Unknown]
  - Product substitution issue [Unknown]
